FAERS Safety Report 11362757 (Version 2)
Quarter: 2015Q3

REPORT INFORMATION
  Report Type: Spontaneous
  Country: US (occurrence: US)
  Receive Date: 20150810
  Receipt Date: 20150812
  Transmission Date: 20151125
  Serious: No
  Sender: FDA-Public Use
  Company Number: US-TEVA-582564ACC

PATIENT
  Age: 47 Year
  Sex: Female

DRUGS (1)
  1. PARAGARD T 380A [Suspect]
     Active Substance: COPPER
     Indication: CONTRACEPTION
     Route: 015
     Dates: start: 20050719, end: 20150720

REACTIONS (2)
  - Device breakage [Unknown]
  - Medical device complication [Unknown]

NARRATIVE: CASE EVENT DATE: 20150720
